FAERS Safety Report 11155799 (Version 1)
Quarter: 2015Q2

REPORT INFORMATION
  Report Type: Spontaneous
  Country: US (occurrence: None)
  Receive Date: 20150601
  Receipt Date: 20150601
  Transmission Date: 20150821
  Serious: Yes (Life-Threatening)
  Sender: FDA-Public Use
  Company Number: None

PATIENT
  Age: 75 Year
  Sex: Female
  Weight: 86.18 kg

DRUGS (4)
  1. AZITHROMYCIN [Suspect]
     Active Substance: AZITHROMYCIN ANHYDROUS
     Indication: SINUSITIS
     Dosage: STRENGTH: 250 MG, QUANTITY: 6 TABLETS 1 PER DAY, 1X DAY, MOUTH
     Route: 048
     Dates: start: 20150323, end: 20150325
  2. LOPRESSOR [Concomitant]
     Active Substance: METOPROLOL TARTRATE
  3. AZITHROMYCIN [Suspect]
     Active Substance: AZITHROMYCIN ANHYDROUS
     Indication: RESPIRATORY TRACT INFECTION
     Dosage: STRENGTH: 250 MG, QUANTITY: 6 TABLETS 1 PER DAY, 1X DAY, MOUTH
     Route: 048
     Dates: start: 20150323, end: 20150325
  4. VITAMIN D [Concomitant]
     Active Substance: CHOLECALCIFEROL

REACTIONS (1)
  - Hypersensitivity [None]

NARRATIVE: CASE EVENT DATE: 20150325
